FAERS Safety Report 15144547 (Version 2)
Quarter: 2018Q4

REPORT INFORMATION
  Report Type: Report from Study
  Country: NZ (occurrence: NZ)
  Receive Date: 20180713
  Receipt Date: 20181114
  Transmission Date: 20190204
  Serious: Yes (Death, Hospitalization)
  Sender: FDA-Public Use
  Company Number: NZ-MYLANLABS-2018M1049291

PATIENT
  Sex: Female

DRUGS (1)
  1. CLOZARIL [Suspect]
     Active Substance: CLOZAPINE
     Indication: SCHIZOPHRENIA
     Dosage: UNK
     Route: 048
     Dates: start: 20080130

REACTIONS (2)
  - Death [Fatal]
  - General physical condition abnormal [Unknown]

NARRATIVE: CASE EVENT DATE: 2018
